FAERS Safety Report 6400583-6 (Version None)
Quarter: 2009Q4

REPORT INFORMATION
  Report Type: 
  Country: None (occurrence: None)
  Receive Date: 20091014
  Receipt Date: 20090930
  Transmission Date: 20100525
  Serious: No
  Sender: FDA-Public Use
  Company Number: PHHY2009BR30402

PATIENT
  Sex: Male

DRUGS (1)
  1. EXELON [Suspect]
     Indication: NEURODEGENERATIVE DISORDER
     Dosage: 1.5 MG, BID
     Route: 048

REACTIONS (2)
  - AGITATION [None]
  - DIZZINESS [None]
